FAERS Safety Report 5034435-3 (Version None)
Quarter: 2006Q2

REPORT INFORMATION
  Report Type: 
  Country: None (occurrence: None)
  Receive Date: 20060626
  Receipt Date: 20060621
  Transmission Date: 20061013
  Serious: Yes (Life-Threatening, Other)
  Sender: FDA-Public Use
  Company Number: US-MERCK-0606USA04276

PATIENT
  Age: 70 Year
  Sex: Female

DRUGS (4)
  1. FOSAMAX [Suspect]
     Indication: OSTEOPOROSIS
     Route: 048
     Dates: end: 20060620
  2. CALTRATE [Concomitant]
     Route: 065
  3. TAMOXIFEN CITRATE [Concomitant]
     Route: 065
  4. SYNTHROID [Concomitant]
     Route: 065

REACTIONS (3)
  - DYSPHAGIA [None]
  - LOOSE TOOTH [None]
  - OESOPHAGITIS [None]
